FAERS Safety Report 4939524-7 (Version None)
Quarter: 2006Q1

REPORT INFORMATION
  Report Type: 
  Country: None (occurrence: None)
  Receive Date: 20060307
  Receipt Date: 20060222
  Transmission Date: 20060701
  Serious: Yes (Death, Life-Threatening, Hospitalization, Other)
  Sender: FDA-Public Use
  Company Number: 2006024640

PATIENT
  Age: 29 Year
  Sex: Female

DRUGS (3)
  1. PREPIDIL [Suspect]
     Indication: LABOUR INDUCTION
     Dosage: FIRST DOSE
     Dates: start: 20000803, end: 20000803
  2. PREPIDIL [Suspect]
     Indication: LABOUR INDUCTION
     Dosage: FIRST DOSE
     Dates: start: 20000804, end: 20000804
  3. OXYTOCIN [Suspect]
     Indication: LABOUR INDUCTION
     Dosage: INTRAVENOUS
     Route: 042
     Dates: start: 20000804, end: 20000804

REACTIONS (3)
  - CARDIO-RESPIRATORY ARREST [None]
  - COMPLICATIONS OF MATERNAL EXPOSURE TO THERAPEUTIC DRUGS [None]
  - DISSEMINATED INTRAVASCULAR COAGULATION [None]
